FAERS Safety Report 7033305-9 (Version None)
Quarter: 2010Q4

REPORT INFORMATION
  Report Type: 
  Country: None (occurrence: None)
  Receive Date: 20101007
  Receipt Date: 20100927
  Transmission Date: 20110411
  Serious: Yes (Hospitalization)
  Sender: FDA-Public Use
  Company Number: B0676406A

PATIENT
  Age: 68 Year
  Sex: Male

DRUGS (8)
  1. ZOFRAN [Suspect]
     Route: 065
     Dates: start: 20100803, end: 20100804
  2. TAXOTERE [Suspect]
     Indication: CHEMOTHERAPY
     Route: 042
     Dates: start: 20100803, end: 20100803
  3. EMEND [Suspect]
     Indication: PRODUCT USED FOR UNKNOWN INDICATION
     Route: 048
     Dates: start: 20100803, end: 20100804
  4. SOLU-MEDROL [Suspect]
     Indication: PRODUCT USED FOR UNKNOWN INDICATION
     Route: 042
     Dates: start: 20100803, end: 20100804
  5. SOLUPRED [Suspect]
     Indication: PRODUCT USED FOR UNKNOWN INDICATION
     Route: 048
     Dates: start: 20100804
  6. PRIMPERAN [Suspect]
     Indication: PRODUCT USED FOR UNKNOWN INDICATION
     Route: 048
     Dates: start: 20100804
  7. MOTILIUM [Suspect]
     Route: 048
     Dates: start: 20100804
  8. NEULASTA [Suspect]
     Indication: PRODUCT USED FOR UNKNOWN INDICATION
     Route: 042
     Dates: start: 20100805, end: 20100805

REACTIONS (2)
  - COLD TYPE HAEMOLYTIC ANAEMIA [None]
  - COOMBS POSITIVE HAEMOLYTIC ANAEMIA [None]
